FAERS Safety Report 4843555-5 (Version None)
Quarter: 2005Q4

REPORT INFORMATION
  Report Type: 
  Country: None (occurrence: None)
  Receive Date: 20051125
  Receipt Date: 20051110
  Transmission Date: 20060501
  Serious: Yes (Other)
  Sender: FDA-Public Use
  Company Number: US200511000051

PATIENT
  Sex: Male

DRUGS (4)
  1. ALIMTA (PEMETREXED UNKNOWN FORMULATION) [Suspect]
     Dates: start: 20051019
  2. FOLIC ACID [Concomitant]
  3. VITAMIN B12 [Concomitant]
  4. DEXAMETHASONE [Concomitant]

REACTIONS (2)
  - HAEMOPTYSIS [None]
  - PRODUCTIVE COUGH [None]
